FAERS Safety Report 8952859 (Version 1)
Quarter: 2012Q4

REPORT INFORMATION
  Report Type: 
  Country: CN (occurrence: CN)
  Receive Date: 20121203
  Receipt Date: 20121203
  Transmission Date: 20130627
  Serious: Yes (Hospitalization)
  Sender: FDA-Public Use
  Company Number: CN-009507513-1210CHN010753

PATIENT
  Age: 60 Year
  Sex: Male

DRUGS (2)
  1. ZOCOR [Suspect]
     Indication: HYPERCHOLESTEROLAEMIA
     Dosage: 20 mg, qd
     Route: 048
     Dates: start: 201108, end: 201209
  2. ZOCOR [Suspect]
     Indication: HYPERLIPIDAEMIA
     Dosage: 20 mg, qd
     Route: 048
     Dates: start: 201210, end: 20121128

REACTIONS (3)
  - Surgery [Recovered/Resolved]
  - Myalgia [Not Recovered/Not Resolved]
  - Cervical myelopathy [Unknown]
